FAERS Safety Report 14418884 (Version 1)
Quarter: 2018Q1

REPORT INFORMATION
  Report Type: Spontaneous
  Country: US (occurrence: US)
  Receive Date: 20180122
  Receipt Date: 20180122
  Transmission Date: 20180509
  Serious: No
  Sender: FDA-Public Use
  Company Number: US-TEVA-815653ACC

PATIENT
  Sex: Female

DRUGS (2)
  1. METFORMIN [Suspect]
     Active Substance: METFORMIN HYDROCHLORIDE
     Dosage: 2500 MILLIGRAM DAILY; ADDITIONAL DOSE OF 500MG METFORMIN AT NOON WAS ADDED
     Dates: start: 201703
  2. METFORMIN [Suspect]
     Active Substance: METFORMIN HYDROCHLORIDE
     Dosage: 2000 MILLIGRAM DAILY; ON ONE 1000 MG TABLET OF METFORMIN IN THE MORNING AND EVENING

REACTIONS (1)
  - Alopecia [Unknown]
